FAERS Safety Report 23842942 (Version 1)
Quarter: 2024Q2

REPORT INFORMATION
  Report Type: Report from Study
  Country: US (occurrence: US)
  Receive Date: 20240510
  Receipt Date: 20240510
  Transmission Date: 20240716
  Serious: Yes (Other)
  Sender: FDA-Public Use
  Company Number: US-ARGENX-2024-ARGX-US002942

PATIENT

DRUGS (1)
  1. VYVGART [Suspect]
     Active Substance: EFGARTIGIMOD ALFA-FCAB
     Indication: Myasthenia gravis
     Dosage: 10 MG/KG
     Route: 042
     Dates: start: 20230731

REACTIONS (4)
  - Facial paralysis [Unknown]
  - Blepharoplasty [Unknown]
  - Contusion [Unknown]
  - Swelling [Unknown]

NARRATIVE: CASE EVENT DATE: 20240423
